FAERS Safety Report 7263602-3 (Version None)
Quarter: 2011Q1

REPORT INFORMATION
  Report Type: 
  Country: None (occurrence: None)
  Receive Date: 20110130
  Receipt Date: 20101105
  Transmission Date: 20110831
  Serious: No
  Sender: FDA-Public Use
  Company Number: US-ABBOTT-10P-163-0683974-00

PATIENT
  Sex: Female
  Weight: 70.37 kg

DRUGS (7)
  1. VIT D [Concomitant]
     Indication: VITAMIN SUPPLEMENTATION
  2. HYDROCHLOROTHIAZIDE [Concomitant]
     Indication: PRODUCT USED FOR UNKNOWN INDICATION
  3. VIT B [Concomitant]
     Indication: VITAMIN SUPPLEMENTATION
  4. CYMBALTA [Concomitant]
     Indication: PRODUCT USED FOR UNKNOWN INDICATION
  5. CYCLOBENZAPRINE [Concomitant]
     Indication: PRODUCT USED FOR UNKNOWN INDICATION
  6. BUSPAR [Concomitant]
     Indication: PRODUCT USED FOR UNKNOWN INDICATION
  7. HUMIRA [Suspect]
     Indication: ANKYLOSING SPONDYLITIS
     Dates: start: 20101018

REACTIONS (7)
  - ERYTHEMA [None]
  - VISION BLURRED [None]
  - PNEUMONIA [None]
  - HEADACHE [None]
  - FATIGUE [None]
  - THERMAL BURN [None]
  - LOCAL SWELLING [None]
